FAERS Safety Report 11260146 (Version 1)
Quarter: 2015Q3

REPORT INFORMATION
  Report Type: Spontaneous
  Country: CN (occurrence: CN)
  Receive Date: 20150710
  Receipt Date: 20150710
  Transmission Date: 20151125
  Serious: Yes (Hospitalization)
  Sender: FDA-Public Use
  Company Number: CN-PFIZER INC-2015225769

PATIENT
  Age: 30 Year
  Sex: Female
  Weight: 49 kg

DRUGS (6)
  1. DEPAKINE [Concomitant]
     Active Substance: VALPROATE SODIUM
     Indication: EPILEPSY
     Dosage: 0.5 G, 1X/DAY
     Route: 048
     Dates: start: 20141218, end: 20150118
  2. DEXAMETHASONE SODIUM PHOSPHATE. [Suspect]
     Active Substance: DEXAMETHASONE SODIUM PHOSPHATE
     Indication: LEUKODYSTROPHY
     Dosage: 10 MG, 1X/DAY
     Route: 042
     Dates: start: 20141221, end: 20141226
  3. SOLU-MEDROL [Suspect]
     Active Substance: METHYLPREDNISOLONE SODIUM SUCCINATE
     Indication: LEUKOENCEPHALOPATHY
     Dosage: 1 G, 1X/DAY
     Route: 042
     Dates: start: 20141227, end: 20141231
  4. SOLU-MEDROL [Suspect]
     Active Substance: METHYLPREDNISOLONE SODIUM SUCCINATE
     Dosage: 0.5 G, 1X/DAY
     Route: 042
  5. LIKEXIN [Suspect]
     Active Substance: ACYCLOVIR
     Indication: VIRAL INFECTION
     Dosage: 500 MG, 1X/DAY
     Route: 042
     Dates: start: 20141227, end: 20150107
  6. PREDNISONE ACETATE [Suspect]
     Active Substance: PREDNISONE ACETATE
     Indication: LEUKOENCEPHALOPATHY
     Dosage: 50 MG, 1X/DAY
     Route: 048
     Dates: start: 20150101, end: 20150116

REACTIONS (1)
  - White blood cell count increased [Unknown]

NARRATIVE: CASE EVENT DATE: 20141231
